FAERS Safety Report 16883850 (Version 1)
Quarter: 2019Q4

REPORT INFORMATION
  Report Type: Spontaneous
  Country: SE (occurrence: SE)
  Receive Date: 20191004
  Receipt Date: 20191004
  Transmission Date: 20200122
  Serious: Yes (Hospitalization)
  Sender: FDA-Public Use
  Company Number: SE-PFIZER INC-2019425233

PATIENT
  Sex: Female

DRUGS (11)
  1. STESOLID [Suspect]
     Active Substance: DIAZEPAM
     Dosage: 80 MG, SINGLE (4 STESOLID OF 20 MG)
     Route: 048
     Dates: start: 20181014, end: 20181014
  2. ARIPIPRAZOL [Suspect]
     Active Substance: ARIPIPRAZOLE
     Dosage: UNK
     Route: 048
     Dates: start: 20181014, end: 20181014
  3. MELATONIN [Suspect]
     Active Substance: MELATONIN
     Dosage: UNK
     Route: 048
     Dates: start: 20181014, end: 20181014
  4. CISORDINOL [ZUCLOPENTHIXOL HYDROCHLORIDE] [Suspect]
     Active Substance: ZUCLOPENTHIXOL
     Dosage: UNK
     Route: 048
     Dates: start: 20181014, end: 20181014
  5. ALIMEMAZINE [Suspect]
     Active Substance: TRIMEPRAZINE
     Dosage: UNK
     Route: 048
     Dates: start: 20181014, end: 20181014
  6. PARGITAN [Suspect]
     Active Substance: TRIHEXYPHENIDYL HYDROCHLORIDE
     Dosage: UNK
     Route: 048
     Dates: start: 20181014, end: 20181014
  7. LERGIGAN [PROMETHAZINE HYDROCHLORIDE] [Suspect]
     Active Substance: PROMETHAZINE HYDROCHLORIDE
     Dosage: 900 MG, SINGLE (36 LERGIGAN OF 25 MG)
     Route: 048
     Dates: start: 20181014, end: 20181014
  8. LAMOTRIGINE. [Suspect]
     Active Substance: LAMOTRIGINE
     Dosage: UNK
     Route: 048
     Dates: start: 20181014, end: 20181014
  9. OLANZAPINE. [Suspect]
     Active Substance: OLANZAPINE
     Dosage: 5 MG, SINGLE
     Route: 048
     Dates: start: 20181014, end: 20181014
  10. NALTREXONE [Suspect]
     Active Substance: NALTREXONE
     Dosage: UNK
     Route: 048
     Dates: start: 20181014, end: 20181014
  11. SERTRALINE HCL [Suspect]
     Active Substance: SERTRALINE HYDROCHLORIDE
     Dosage: UNK
     Route: 048
     Dates: start: 20181014, end: 20181014

REACTIONS (4)
  - Intentional overdose [Unknown]
  - Intentional self-injury [Unknown]
  - Depressed level of consciousness [Unknown]
  - Fatigue [Unknown]

NARRATIVE: CASE EVENT DATE: 201810
